FAERS Safety Report 5501752-X (Version None)
Quarter: 2007Q4

REPORT INFORMATION
  Report Type: 
  Country: None (occurrence: None)
  Receive Date: 20071018
  Receipt Date: 20070411
  Transmission Date: 20080405
  Serious: Yes (Other)
  Sender: FDA-Public Use
  Company Number: 2007029879

PATIENT
  Sex: Female

DRUGS (1)
  1. NEURONTIN [Suspect]
     Indication: MYOFASCIAL PAIN SYNDROME
     Dosage: 300 MG (300 MG, 1 IN 1 D)
     Dates: start: 20061101

REACTIONS (7)
  - AMNESIA [None]
  - FATIGUE [None]
  - MUSCLE TWITCHING [None]
  - NAUSEA [None]
  - RESTLESS LEGS SYNDROME [None]
  - STOMACH DISCOMFORT [None]
  - WEIGHT INCREASED [None]
